FAERS Safety Report 6411371-9 (Version None)
Quarter: 2009Q4

REPORT INFORMATION
  Report Type: 
  Country: None (occurrence: None)
  Receive Date: 20091020
  Receipt Date: 20091007
  Transmission Date: 20100525
  Serious: Yes (Hospitalization)
  Sender: FDA-Public Use
  Company Number: 2009AC000204

PATIENT
  Age: 78 Year
  Sex: Female
  Weight: 52.1637 kg

DRUGS (19)
  1. DIGOXIN [Suspect]
     Indication: ARRHYTHMIA
     Dosage: 0.25 MG; QD;
     Dates: start: 20080101, end: 20080308
  2. ZOFRAN [Concomitant]
  3. COLCHICINE [Concomitant]
  4. PROMETHAZINE [Concomitant]
  5. CARVEDILOL [Concomitant]
  6. ALLOPURINOL [Concomitant]
  7. LASIX [Concomitant]
  8. WARFARIN SODIUM [Concomitant]
  9. POTASSIUM CHLORIDE [Concomitant]
  10. PREDNISOLONE [Concomitant]
  11. LYRICA [Concomitant]
  12. LEVOPHED [Concomitant]
  13. RESTORIL [Concomitant]
  14. METOCLOPRAMIDE [Concomitant]
  15. IMMODIUM [Concomitant]
  16. TUMS [Concomitant]
  17. VITAMIN D [Concomitant]
  18. AMITRIPTYLINE [Concomitant]
  19. PANTOPRZOLE [Concomitant]

REACTIONS (20)
  - ASTHENIA [None]
  - ATRIAL FIBRILLATION [None]
  - BLOOD CALCIUM DECREASED [None]
  - BLOOD POTASSIUM DECREASED [None]
  - BRADYCARDIA [None]
  - CARDIAC MURMUR [None]
  - CARDIOACTIVE DRUG LEVEL INCREASED [None]
  - DECREASED APPETITE [None]
  - DIABETES MELLITUS INADEQUATE CONTROL [None]
  - DIARRHOEA [None]
  - GASTROINTESTINAL DISORDER [None]
  - ILL-DEFINED DISORDER [None]
  - MALAISE [None]
  - MULTIPLE INJURIES [None]
  - NAUSEA [None]
  - RENAL FAILURE [None]
  - RETCHING [None]
  - THERAPEUTIC AGENT TOXICITY [None]
  - VOMITING [None]
  - WEIGHT DECREASED [None]
